FAERS Safety Report 5823170-7 (Version None)
Quarter: 2008Q3

REPORT INFORMATION
  Report Type: 
  Country: None (occurrence: None)
  Receive Date: 20080725
  Receipt Date: 20080718
  Transmission Date: 20090109
  Serious: Yes (Other)
  Sender: FDA-Public Use
  Company Number: PHHY2008FR14817

PATIENT

DRUGS (4)
  1. TEGRETOL [Suspect]
     Indication: EPILEPSY
     Dosage: 200 MG QD AND 400 MG BID
     Route: 048
  2. LYRICA [Concomitant]
     Indication: EPILEPSY
     Dosage: 150 MG, BID
  3. CLONAZEPAM [Concomitant]
     Indication: EPILEPSY
     Dosage: 2 MG, BID
  4. DOLIPRANE [Concomitant]

REACTIONS (3)
  - DELIRIUM [None]
  - DRUG INEFFECTIVE [None]
  - EPILEPSY [None]
